FAERS Safety Report 22216582 (Version 1)
Quarter: 2023Q2

REPORT INFORMATION
  Report Type: Other
  Country: IN (occurrence: None)
  Receive Date: 20230417
  Receipt Date: 20230417
  Transmission Date: 20230722
  Serious: Yes (Hospitalization, Other)
  Sender: FDA-Public Use
  Company Number: IN-ROCHE-3167860

PATIENT
  Age: 61 Year
  Sex: Male

DRUGS (2)
  1. TECENTRIQ [Suspect]
     Active Substance: ATEZOLIZUMAB
     Indication: Hepatocellular carcinoma
     Route: 042
     Dates: start: 20220720
  2. TECENTRIQ [Suspect]
     Active Substance: ATEZOLIZUMAB
     Indication: Hepatocellular carcinoma

REACTIONS (10)
  - Pyrexia [Unknown]
  - Vomiting [Unknown]
  - Mesenteric vein thrombosis [Unknown]
  - Pyrexia [Unknown]
  - Pain [Recovering/Resolving]
  - Peroneal nerve palsy [Unknown]
  - Epistaxis [Unknown]
  - Increased appetite [Unknown]
  - Drug ineffective [Unknown]
  - Disease progression [Unknown]

NARRATIVE: CASE EVENT DATE: 20220810
